FAERS Safety Report 6721592-3 (Version None)
Quarter: 2010Q2

REPORT INFORMATION
  Report Type: 
  Country: None (occurrence: None)
  Receive Date: 20100512
  Receipt Date: 20100419
  Transmission Date: 20101027
  Serious: Yes (Disabling)
  Sender: FDA-Public Use
  Company Number: PHHY2010US22882

PATIENT
  Age: 53 Year
  Sex: Male
  Weight: 85 kg

DRUGS (8)
  1. MYFORTIC [Suspect]
     Indication: LIVER TRANSPLANT
     Dosage: UNK
     Dates: start: 20080526
  2. MYFORTIC [Suspect]
     Indication: IMMUNOSUPPRESSION
  3. PROGRAF [Concomitant]
     Indication: LIVER TRANSPLANT
  4. PROTONIX [Concomitant]
  5. ACTIGALL [Concomitant]
     Indication: CHOLECYSTECTOMY
  6. COZAAR [Concomitant]
     Indication: HYPERTENSION
  7. ASPIRIN [Concomitant]
     Dosage: 81 MG/DAY
     Route: 048
     Dates: start: 20000418
  8. AMBIEN [Concomitant]
     Indication: INSOMNIA
     Dosage: 10 MG/DAY
     Route: 048
     Dates: start: 20010418

REACTIONS (1)
  - AMNESIA [None]
